FAERS Safety Report 4686640-3 (Version None)
Quarter: 2005Q2

REPORT INFORMATION
  Report Type: 
  Country: None (occurrence: None)
  Receive Date: 20050608
  Receipt Date: 20050531
  Transmission Date: 20051028
  Serious: Yes (Hospitalization)
  Sender: FDA-Public Use
  Company Number: USA-2005-0019769

PATIENT
  Age: 5 Month
  Sex: Male

DRUGS (2)
  1. CEFDITOREN PIVOXIL (SIMILAR TO NDA-222) (CEFDITOREN PIVOXIL)OTHER [Suspect]
     Indication: PERIANAL ABSCESS
     Dosage: ORAL
     Route: 048
     Dates: start: 20050221, end: 20050227
  2. ENTOMOL (ANTIBIOTICS-RESISTANT LACTIC ACID BACTERIAE) [Suspect]
     Indication: PERIANAL ABSCESS
     Dosage: 0.5 GRAM, DAILY, ORAL
     Route: 048
     Dates: start: 20050221, end: 20050227

REACTIONS (5)
  - CONDITION AGGRAVATED [None]
  - INFLAMMATION [None]
  - NEUTROPENIA [None]
  - PERIANAL ABSCESS [None]
  - WHITE BLOOD CELL COUNT INCREASED [None]
